FAERS Safety Report 8576489-3 (Version None)
Quarter: 2012Q3

REPORT INFORMATION
  Report Type: 
  Country: None (occurrence: None)
  Receive Date: 20120807
  Receipt Date: 20120731
  Transmission Date: 20120928
  Serious: Yes (Death)
  Sender: FDA-Public Use
  Company Number: US-INCYTE CORPORATION-2012IN001416

PATIENT
  Sex: Female

DRUGS (12)
  1. PRILOSEC [Concomitant]
  2. OXYCODONE HCL [Concomitant]
  3. ZOFRAN [Concomitant]
  4. TYLENOL [Concomitant]
  5. ADVIL [Concomitant]
  6. FENTANYL [Concomitant]
  7. HYDROCHLOROTHIAZDE TAB [Concomitant]
  8. COMPAZINE [Concomitant]
  9. JAKAFI [Suspect]
     Indication: MYELOFIBROSIS
     Dosage: 20 MG, BID
     Route: 048
  10. ASPIRIN [Concomitant]
     Dosage: 81 MG, UNK
  11. ALLOPURINOL [Concomitant]
  12. XANAX [Concomitant]

REACTIONS (1)
  - DEATH [None]
